FAERS Safety Report 5899462-2 (Version None)
Quarter: 2008Q3

REPORT INFORMATION
  Report Type: 
  Country: None (occurrence: None)
  Receive Date: 20080926
  Receipt Date: 20080917
  Transmission Date: 20090109
  Serious: Yes (Hospitalization)
  Sender: FDA-Public Use
  Company Number: US-SOLVAY-00208004386

PATIENT
  Age: 340 Month
  Sex: Male
  Weight: 116.5 kg

DRUGS (5)
  1. ANDROGEL [Suspect]
     Indication: BLOOD TESTOSTERONE DECREASED
     Dosage: DAILY DOSE: 5 GRAM(S) VIA PUMP
     Route: 062
     Dates: start: 20080601, end: 20080804
  2. LOTREL [Concomitant]
     Indication: HYPERTENSION
     Dosage: DAILY DOSE: 10/20MG
     Route: 048
  3. LASIX [Concomitant]
     Indication: FLUID RETENTION
     Dosage: DAILY DOSE: 20 MILLIGRAM(S)
     Route: 048
  4. XANAX [Concomitant]
     Indication: PANIC DISORDER
     Dosage: DAILY DOSE: 6 MILLIGRAM(S)
     Route: 048
  5. ADVIL [Concomitant]
     Indication: PAIN
     Dosage: DAILY DOSE: 1 DOSAGE FORM AS NEEDED
     Route: 048

REACTIONS (2)
  - APPLICATION SITE REACTION [None]
  - GASTROINTESTINAL HAEMORRHAGE [None]
